FAERS Safety Report 25359929 (Version 1)
Quarter: 2025Q2

REPORT INFORMATION
  Report Type: Spontaneous
  Country: RU (occurrence: RU)
  Receive Date: 20250526
  Receipt Date: 20250526
  Transmission Date: 20250717
  Serious: Yes (Other)
  Sender: BRISTOL-MYERS SQUIBB COMPANY
  Company Number: RU-BRISTOL-MYERS SQUIBB COMPANY-2025-073897

PATIENT
  Age: 35 Year
  Sex: Male

DRUGS (3)
  1. NIVOLUMAB [Suspect]
     Active Substance: NIVOLUMAB
     Indication: Malignant melanoma stage II
     Dates: start: 202308
  2. NIVOLUMAB [Suspect]
     Active Substance: NIVOLUMAB
     Route: 042
     Dates: start: 202401
  3. IPILIMUMAB [Suspect]
     Active Substance: IPILIMUMAB
     Indication: Malignant melanoma stage II
     Dates: start: 202308, end: 202312

REACTIONS (3)
  - Malignant neoplasm progression [Unknown]
  - Steroid diabetes [Unknown]
  - Intracranial tumour haemorrhage [Unknown]

NARRATIVE: CASE EVENT DATE: 20230901
